FAERS Safety Report 8183109-9 (Version None)
Quarter: 2012Q1

REPORT INFORMATION
  Report Type: 
  Country: None (occurrence: None)
  Receive Date: 20120126
  Receipt Date: 20111207
  Transmission Date: 20120608
  Serious: Yes (Hospitalization, Other)
  Sender: FDA-Public Use
  Company Number: PHEH2011US011273

PATIENT
  Age: 75 Year
  Sex: Male

DRUGS (1)
  1. AFINITOR [Suspect]
     Dosage: 5 MG, QD, ORAL
     Route: 048
     Dates: start: 20110801

REACTIONS (2)
  - PNEUMONIA [None]
  - DIABETES MELLITUS [None]
